FAERS Safety Report 23474245 (Version 1)
Quarter: 2024Q1

REPORT INFORMATION
  Report Type: Report from Study
  Country: JP (occurrence: JP)
  Receive Date: 20240204
  Receipt Date: 20240204
  Transmission Date: 20240410
  Serious: Yes (Hospitalization, Other)
  Sender: FDA-Public Use
  Company Number: JP-TAKEDA-2023TJP000316

PATIENT
  Age: 85 Year
  Sex: Male
  Weight: 65.3 kg

DRUGS (1)
  1. CABOMETYX [Suspect]
     Active Substance: CABOZANTINIB S-MALATE
     Indication: Hepatocellular carcinoma
     Dosage: 20 MG ONCE EVERY 5 DAYS
     Route: 048
     Dates: start: 20230112, end: 20230209

REACTIONS (4)
  - Ascites [Recovering/Resolving]
  - Proteinuria [Recovering/Resolving]
  - Intercepted product prescribing error [Unknown]
  - Inappropriate schedule of product administration [Unknown]

NARRATIVE: CASE EVENT DATE: 20230112
